FAERS Safety Report 4292624-X (Version None)
Quarter: 2004Q1

REPORT INFORMATION
  Report Type: 
  Country: None (occurrence: None)
  Receive Date: 20040126
  Receipt Date: 20031017
  Transmission Date: 20041129
  Serious: No
  Sender: FDA-Public Use
  Company Number: USA031050219

PATIENT
  Age: 57 Year
  Sex: Female
  Weight: 51 kg

DRUGS (7)
  1. FORTEO [Suspect]
     Indication: OSTEOPOROSIS
     Dosage: 20UG/DAY
     Dates: start: 20031013
  2. ACTIPHEX (RABEPRAZOLE SODIUM) [Concomitant]
  3. DIPENTUM [Concomitant]
  4. INTERFERON [Concomitant]
  5. ELAVIL [Concomitant]
  6. ADVAIR DISKUS 100/50 [Concomitant]
  7. PROCRIT (ERYTHROPOIETIN) [Concomitant]

REACTIONS (3)
  - FEELING ABNORMAL [None]
  - PARAESTHESIA [None]
  - SENSATION OF HEAVINESS [None]
